FAERS Safety Report 10285122 (Version 2)
Quarter: 2014Q3

REPORT INFORMATION
  Report Type: Report from Study
  Country: JP (occurrence: JP)
  Receive Date: 20140708
  Receipt Date: 20140708
  Transmission Date: 20150326
  Serious: Yes (Hospitalization)
  Sender: FDA-Public Use
  Company Number: JP-TAKEDA-2014TJP007410

PATIENT
  Age: 40 Year
  Sex: Female
  Weight: 46.9 kg

DRUGS (9)
  1. BLINDED MLN0002 [Suspect]
     Active Substance: VEDOLIZUMAB
     Dosage: UNK
     Dates: start: 20140521, end: 20140521
  2. ELENTAL [Concomitant]
     Indication: CROHN^S DISEASE
     Dosage: 400 UNK, TID
     Route: 048
  3. PHELLOBERIN [Concomitant]
     Indication: CROHN^S DISEASE
     Dosage: 2 TAB, TID
     Route: 048
  4. MIYA-BM [Concomitant]
     Active Substance: CLOSTRIDIUM BUTYRICUM SPORES STRAIN M-55
     Indication: CROHN^S DISEASE
     Dosage: 3 TAB, TID
     Route: 048
  5. BLINDED MLN0002 [Suspect]
     Active Substance: VEDOLIZUMAB
     Indication: CROHN^S DISEASE
     Dosage: UNK
     Dates: start: 20140507, end: 20140507
  6. PLACEBO [Suspect]
     Active Substance: UNSPECIFIED INGREDIENT
     Indication: CROHN^S DISEASE
     Dosage: UNK
     Dates: start: 20140507, end: 20140507
  7. PENTASA KYORIN [Concomitant]
     Indication: CROHN^S DISEASE
     Dosage: 1,000 MG, TID
     Route: 048
  8. PLACEBO [Suspect]
     Active Substance: UNSPECIFIED INGREDIENT
     Dosage: UNK
     Dates: start: 20140521, end: 20140521
  9. IMURAN [Concomitant]
     Active Substance: AZATHIOPRINE
     Indication: CROHN^S DISEASE
     Dosage: 50 MG, QD
     Route: 048

REACTIONS (3)
  - General physical health deterioration [None]
  - Crohn^s disease [Recovered/Resolved]
  - Large intestine polyp [None]

NARRATIVE: CASE EVENT DATE: 20140612
